FAERS Safety Report 8917350 (Version 3)
Quarter: 2013Q1

REPORT INFORMATION
  Report Type: Spontaneous
  Country: US (occurrence: US)
  Receive Date: 20121120
  Receipt Date: 20130328
  Transmission Date: 20140127
  Serious: No
  Sender: FDA-Public Use
  Company Number: US-VERTEX PHARMACEUTICAL INC.-2012-024768

PATIENT
  Age: 54 None
  Sex: Male
  Weight: 72 kg

DRUGS (6)
  1. INCIVEK [Suspect]
     Indication: HEPATITIS C
     Dosage: 750 MG, TID
     Route: 048
     Dates: start: 20121103
  2. RIBAVIRIN [Suspect]
     Indication: HEPATITIS C
     Dosage: 400 MG, BID
     Route: 048
     Dates: start: 20121103
  3. RIBAVIRIN [Suspect]
     Dosage: 400 MG, QD
     Route: 048
     Dates: start: 201212
  4. RIBAVIRIN [Suspect]
     Dosage: 400 MG IN AM, 200 MG IN PM
     Route: 048
     Dates: start: 20130116
  5. RIBAVIRIN [Suspect]
     Dosage: 600 MG, QD
  6. PEGASYS [Suspect]
     Indication: HEPATITIS C
     Dosage: 180 ?G, QW
     Route: 058
     Dates: start: 20121103

REACTIONS (4)
  - Blood count abnormal [Recovered/Resolved]
  - Rash macular [Recovered/Resolved]
  - Pruritus [Unknown]
  - Nausea [Not Recovered/Not Resolved]
